FAERS Safety Report 4780666-7 (Version None)
Quarter: 2005Q3

REPORT INFORMATION
  Report Type: 
  Country: None (occurrence: None)
  Receive Date: 20050926
  Receipt Date: 20050914
  Transmission Date: 20060218
  Serious: Yes (Hospitalization, Other)
  Sender: FDA-Public Use
  Company Number: 2005115349

PATIENT
  Age: 78 Year
  Sex: Male
  Weight: 83.9154 kg

DRUGS (24)
  1. ZYVOX [Suspect]
     Indication: STAPHYLOCOCCAL INFECTION
     Dosage: 1200 MG (600 MG, BID INTERVAL: EVERDAY), ORAL
     Route: 048
     Dates: start: 20050101, end: 20050805
  2. AMARYL [Suspect]
     Indication: DIABETES MELLITUS
     Dosage: 2 MG (2 MG, DAILY), ORAL
     Route: 048
     Dates: end: 20050807
  3. AVANDIA [Suspect]
     Indication: DIABETES MELLITUS
     Dosage: 4 MG (4 MG, DAILY), ORAL
     Route: 048
     Dates: end: 20050101
  4. ATROVENT [Concomitant]
  5. SYNTHROID [Concomitant]
  6. ALLOPURINOL [Concomitant]
  7. METHOTREXATE [Concomitant]
  8. SODIUM         (SODIUM) [Concomitant]
  9. ALBUTEROL [Concomitant]
  10. VICODIN [Concomitant]
  11. LEVOXYL [Concomitant]
  12. LASIX [Concomitant]
  13. ALDACTONE [Concomitant]
  14. NEURONTIN [Concomitant]
  15. PREDNISONE [Concomitant]
  16. PROTONIX [Concomitant]
  17. FOLIC ACID [Concomitant]
  18. COREG [Concomitant]
  19. ATENOLOL [Concomitant]
  20. ZOCOR [Concomitant]
  21. CLAFORAN [Concomitant]
  22. MYCELEX [Concomitant]
  23. CHLORASEPTIC (PHENOL) [Concomitant]
  24. TYLENOL (PARACETAMOL) [Concomitant]

REACTIONS (5)
  - BLOOD CREATININE INCREASED [None]
  - DRUG INTERACTION [None]
  - HYPOGLYCAEMIA [None]
  - OVERDOSE [None]
  - THROMBOCYTOPENIA [None]
